FAERS Safety Report 18777754 (Version 18)
Quarter: 2024Q1

REPORT INFORMATION
  Report Type: Spontaneous
  Country: US (occurrence: US)
  Receive Date: 20210122
  Receipt Date: 20240220
  Transmission Date: 20240410
  Serious: No
  Sender: FDA-Public Use
  Company Number: US-PFIZER INC-2020445393

PATIENT
  Age: 68 Year
  Sex: Female

DRUGS (2)
  1. IBRANCE [Suspect]
     Active Substance: PALBOCICLIB
     Indication: Breast cancer
     Dosage: 1TAB DAILY X 14 DAYS; OFF 1 WEEK EVERY 21 DAY CYCLE
     Route: 048
  2. IBRANCE [Suspect]
     Active Substance: PALBOCICLIB
     Dosage: 100 MG, CYCLIC (1 TABLET X 14 DAYS, OFF 7 DAYS AND REPEAT)
     Route: 048

REACTIONS (5)
  - Nausea [Not Recovered/Not Resolved]
  - Dyspnoea [Unknown]
  - Musculoskeletal chest pain [Unknown]
  - Brain fog [Unknown]
  - Off label use [Unknown]
